FAERS Safety Report 6445804-9 (Version None)
Quarter: 2009Q4

REPORT INFORMATION
  Report Type: 
  Country: None (occurrence: None)
  Receive Date: 20091119
  Receipt Date: 20091109
  Transmission Date: 20100525
  Serious: Yes (Hospitalization)
  Sender: FDA-Public Use
  Company Number: US-BIOGENIDEC-2004BI000879

PATIENT
  Age: 33 Year
  Sex: Female

DRUGS (3)
  1. AVONEX [Suspect]
     Indication: MULTIPLE SCLEROSIS
     Route: 030
     Dates: start: 20000301
  2. AVONEX [Suspect]
     Route: 030
     Dates: start: 20020101, end: 20041009
  3. AVONEX [Suspect]
     Route: 030
     Dates: start: 20090401

REACTIONS (2)
  - INFLUENZA LIKE ILLNESS [None]
  - OBESITY [None]
